FAERS Safety Report 9194935 (Version 1)
Quarter: 2013Q1

REPORT INFORMATION
  Report Type: Spontaneous
  Country: US (occurrence: US)
  Receive Date: 20130328
  Receipt Date: 20130328
  Transmission Date: 20140127
  Serious: No
  Sender: FDA-Public Use
  Company Number: US-ALLERGAN-1215728US

PATIENT
  Sex: Female

DRUGS (4)
  1. LATISSE 0.03% [Suspect]
     Indication: GROWTH OF EYELASHES
     Dosage: 2 GTT, QHS
     Route: 061
     Dates: start: 2012
  2. LATISSE 0.03% [Suspect]
     Indication: HAIR GROWTH ABNORMAL
     Dosage: UNK
     Dates: start: 2012
  3. FISH OIL [Concomitant]
     Indication: SUPPLEMENTATION THERAPY
     Dosage: UNK
  4. MULTI VITAMIN [Concomitant]
     Indication: SUPPLEMENTATION THERAPY
     Dosage: UNK

REACTIONS (4)
  - Drug administered at inappropriate site [Unknown]
  - Incorrect dose administered [Unknown]
  - Madarosis [Unknown]
  - Madarosis [Unknown]
